FAERS Safety Report 26087591 (Version 1)
Quarter: 2025Q4

REPORT INFORMATION
  Report Type: Spontaneous
  Country: US (occurrence: US)
  Receive Date: 20251125
  Receipt Date: 20251125
  Transmission Date: 20260118
  Serious: No
  Sender: VERTEX
  Company Number: US-VERTEX PHARMACEUTICALS-2025-019147

PATIENT

DRUGS (1)
  1. SUZETRIGINE [Suspect]
     Active Substance: SUZETRIGINE
     Indication: Pain
     Dosage: UNK

REACTIONS (2)
  - Vertigo [Not Recovered/Not Resolved]
  - Dizziness [Not Recovered/Not Resolved]

NARRATIVE: CASE EVENT DATE: 20250101
